FAERS Safety Report 14615106 (Version 1)
Quarter: 2018Q1

REPORT INFORMATION
  Report Type: Spontaneous
  Country: CN (occurrence: CN)
  Receive Date: 20180308
  Receipt Date: 20180308
  Transmission Date: 20180509
  Serious: Yes (Hospitalization, Other)
  Sender: FDA-Public Use
  Company Number: CN-PFIZER INC-2018091925

PATIENT
  Age: 4 Year
  Sex: Male
  Weight: 16 kg

DRUGS (6)
  1. GLUCOSE INJECTION [Concomitant]
     Active Substance: DEXTROSE
     Dosage: 160 ML, 1X/DAY
     Route: 041
     Dates: start: 20180102, end: 20180102
  2. GLUCOSE INJECTION [Concomitant]
     Active Substance: DEXTROSE
     Indication: VEHICLE SOLUTION USE
     Dosage: 160 ML, 2X/DAY
     Route: 041
     Dates: start: 20180101, end: 20180101
  3. SODIUM BICARBONATE. [Concomitant]
     Active Substance: SODIUM BICARBONATE
     Indication: PH BODY FLUID
     Dosage: 1.6 ML, 2X/DAY
     Route: 041
     Dates: start: 20180101, end: 20180101
  4. ERYTHROMYCIN LACTOBIONATE [Suspect]
     Active Substance: ERYTHROMYCIN LACTOBIONATE
     Indication: INFECTION
     Dosage: 160 MG, 2X/DAY
     Route: 041
     Dates: start: 20180101, end: 20180101
  5. ZITHROMAX [Suspect]
     Active Substance: AZITHROMYCIN DIHYDRATE
     Indication: INFECTION
     Dosage: 160 MG, 1X/DAY
     Route: 048
     Dates: start: 20180102, end: 20180102
  6. QI XIAN [Suspect]
     Active Substance: AZITHROMYCIN
     Indication: INFECTION
     Dosage: 160 MG, 1X/DAY
     Route: 041
     Dates: start: 20180102, end: 20180102

REACTIONS (2)
  - Abdominal pain [Recovering/Resolving]
  - Abdominal distension [Recovering/Resolving]

NARRATIVE: CASE EVENT DATE: 20180101
